FAERS Safety Report 4676789-3 (Version None)
Quarter: 2005Q2

REPORT INFORMATION
  Report Type: 
  Country: None (occurrence: None)
  Receive Date: 20050527
  Receipt Date: 20050311
  Transmission Date: 20051028
  Serious: Yes (Hospitalization, Disabling, Other)
  Sender: FDA-Public Use
  Company Number: US-MERCK-0503USA02743

PATIENT
  Age: 84 Year
  Sex: Male
  Weight: 73 kg

DRUGS (20)
  1. VIOXX [Suspect]
     Indication: SPINAL COLUMN STENOSIS
     Route: 048
     Dates: start: 19990901, end: 20040901
  2. VIOXX [Suspect]
     Indication: ARTHRITIS
     Route: 048
     Dates: start: 19990901, end: 20040901
  3. PROCARDIA [Concomitant]
     Route: 065
  4. PREVACID [Concomitant]
     Route: 065
  5. CARDURA [Concomitant]
     Route: 065
     Dates: start: 19991201, end: 20040901
  6. DETROL [Concomitant]
     Route: 065
  7. AMBIEN [Concomitant]
     Route: 065
  8. COLACE [Concomitant]
     Route: 065
  9. GEMFIBROZIL [Concomitant]
     Route: 065
  10. XALATAN [Concomitant]
     Route: 065
  11. ASPIRIN [Concomitant]
     Route: 065
  12. DOXAZOSIN MESYLATE [Concomitant]
     Route: 065
  13. ALLEGRA [Concomitant]
     Route: 065
  14. NASONEX [Concomitant]
     Route: 065
  15. TYLENOL (CAPLET) [Concomitant]
     Route: 065
     Dates: start: 20030501, end: 20040901
  16. GAVISCON ANTACID TABLETS [Concomitant]
     Route: 065
  17. AUGMENTIN '125' [Concomitant]
     Route: 065
  18. HUMIBID [Concomitant]
     Route: 065
  19. TOPROL-XL [Concomitant]
     Route: 065
  20. DYAZIDE [Concomitant]
     Route: 065

REACTIONS (17)
  - APHASIA [None]
  - ATRIAL FIBRILLATION [None]
  - BLADDER DISORDER [None]
  - BLINDNESS [None]
  - CEREBROVASCULAR ACCIDENT [None]
  - CHEST PAIN [None]
  - CHEST WALL PAIN [None]
  - COUGH [None]
  - DEPRESSION [None]
  - DROOLING [None]
  - DYSPHAGIA [None]
  - GASTROOESOPHAGEAL REFLUX DISEASE [None]
  - HIATUS HERNIA [None]
  - OEDEMA [None]
  - SPEECH DISORDER [None]
  - THROMBOSIS [None]
  - VOCAL CORD DISORDER [None]
